FAERS Safety Report 5766278-7 (Version None)
Quarter: 2008Q2

REPORT INFORMATION
  Report Type: 
  Country: None (occurrence: None)
  Receive Date: 20080606
  Receipt Date: 20080522
  Transmission Date: 20081010
  Serious: Yes (Hospitalization)
  Sender: FDA-Public Use
  Company Number: 2008AL005789

PATIENT
  Age: 50 Year
  Sex: Female

DRUGS (8)
  1. DIGOXIN [Suspect]
     Indication: SUPRAVENTRICULAR TACHYCARDIA
     Dosage: 0.125MG,QD,PO
     Route: 048
     Dates: start: 19920101
  2. RYTHMOL [Concomitant]
  3. TOPROL-XL [Concomitant]
  4. PREDNISONE TAB [Concomitant]
  5. ADVAIR DISKUS 100/50 [Concomitant]
  6. SINGULIR [Concomitant]
  7. WARFARIN SODIUM [Concomitant]
  8. ALBUTEROL SULFATE AUTOHALER [Concomitant]

REACTIONS (2)
  - CARDIAC ANEURYSM [None]
  - DYSPEPSIA [None]
